FAERS Safety Report 10240544 (Version 1)
Quarter: 2014Q2

REPORT INFORMATION
  Report Type: Spontaneous
  Country: US (occurrence: US)
  Receive Date: 20140617
  Receipt Date: 20140617
  Transmission Date: 20141212
  Serious: Yes (Death)
  Sender: FDA-Public Use
  Company Number: CHPA2014US008226

PATIENT
  Age: 76 Year
  Sex: Male

DRUGS (1)
  1. VOLTAREN GEL [Suspect]
     Dosage: UNK, UNK
     Route: 065

REACTIONS (1)
  - Death [Fatal]
